FAERS Safety Report 16813087 (Version 1)
Quarter: 2019Q3

REPORT INFORMATION
  Report Type: Other
  Country: None (occurrence: US)
  Receive Date: 20190916
  Receipt Date: 20190916
  Transmission Date: 20191005
  Serious: No
  Sender: FDA-Public Use
  Company Number: US-LEADIANT BIOSCIENCES INC-2019STPI000043

PATIENT
  Sex: Male

DRUGS (8)
  1. GLEOSTINE [Concomitant]
     Active Substance: LOMUSTINE
  2. KEPPRA [Concomitant]
     Active Substance: LEVETIRACETAM
  3. LORAZEPAM. [Concomitant]
     Active Substance: LORAZEPAM
  4. MATULANE [Suspect]
     Active Substance: PROCARBAZINE HYDROCHLORIDE
     Indication: BRAIN NEOPLASM
     Dosage: 100 MILLIGRAM, QD DAYS 8-21 EVERY 56 DAYS
     Route: 048
     Dates: start: 20181010
  5. LISINOPRIL. [Concomitant]
     Active Substance: LISINOPRIL
  6. METFORMIN [Concomitant]
     Active Substance: METFORMIN HYDROCHLORIDE
  7. LEXAPRO [Concomitant]
     Active Substance: ESCITALOPRAM OXALATE
  8. METOPROLOL. [Concomitant]
     Active Substance: METOPROLOL

REACTIONS (1)
  - Nausea [Not Recovered/Not Resolved]
